FAERS Safety Report 8346356 (Version 5)
Quarter: 2012Q4

REPORT INFORMATION
  Report Type: 
  Country: BR (occurrence: BR)
  Receive Date: 20120120
  Receipt Date: 20121001
  Transmission Date: 20130627
  Serious: Yes (Death, Life-Threatening, Hospitalization, Other)
  Sender: FDA-Public Use
  Company Number: PHHO2012BR001148

PATIENT
  Age: 62 Year
  Sex: Male
  Weight: 53 kg

DRUGS (6)
  1. FUROSEMIDE [Suspect]
     Indication: CARDIAC FAILURE CONGESTIVE
     Dosage: 40 mg, QD
     Dates: start: 20111222, end: 20120112
  2. FUROSEMIDE [Suspect]
     Dosage: UNK
     Route: 048
     Dates: start: 20120113, end: 20120113
  3. UNSPECIFIED INGREDIENT [Suspect]
     Indication: CARDIAC FAILURE CHRONIC
     Dosage: 200 mg, QD
     Route: 048
     Dates: start: 20111222, end: 20120113
  4. BLINDED ENALAPRIL [Suspect]
     Indication: CARDIAC FAILURE CHRONIC
     Dosage: Run-in phase
  5. BLINDED LCZ696 [Suspect]
     Indication: CARDIAC FAILURE CHRONIC
     Dosage: Run-in phase
  6. BLINDED NO TREATMENT RECEIVED [Suspect]
     Indication: CARDIAC FAILURE CHRONIC
     Dosage: Run-in phase

REACTIONS (6)
  - American trypanosomiasis [Fatal]
  - Hyperkalaemia [Fatal]
  - Blood creatinine increased [Fatal]
  - Ventricular fibrillation [Fatal]
  - Cardiogenic shock [Fatal]
  - Cardiac arrest [Not Recovered/Not Resolved]
